FAERS Safety Report 9372051 (Version 1)
Quarter: 2013Q2

REPORT INFORMATION
  Report Type: Report from Study
  Country: US (occurrence: US)
  Receive Date: 20130627
  Receipt Date: 20130627
  Transmission Date: 20140414
  Serious: Yes (Hospitalization, Other)
  Sender: FDA-Public Use
  Company Number: US-MYLANLABS-2012S1013721

PATIENT
  Age: 32 Year
  Sex: Male
  Weight: 77.11 kg

DRUGS (10)
  1. CLOZAPINE TABLETS [Suspect]
     Indication: SCHIZOAFFECTIVE DISORDER
     Route: 048
     Dates: start: 20120227
  2. DEPAKOTE ER [Concomitant]
  3. PROZAC [Concomitant]
  4. BENZOTROPINE [Concomitant]
  5. SUSTEN [Concomitant]
     Dosage: INJECTION
  6. LISINOPRIL [Concomitant]
  7. OMEPRAZOLE [Concomitant]
  8. RANITIDINE [Concomitant]
  9. VERAPAMIL [Concomitant]
  10. ZYRTEC [Concomitant]

REACTIONS (2)
  - Granulocytopenia [Not Recovered/Not Resolved]
  - Leukopenia [Recovered/Resolved]
